FAERS Safety Report 24577712 (Version 2)
Quarter: 2024Q4

REPORT INFORMATION
  Report Type: Spontaneous
  Country: ES (occurrence: ES)
  Receive Date: 20241104
  Receipt Date: 20241125
  Transmission Date: 20250114
  Serious: Yes (Other)
  Sender: GE HEALTHCARE
  Company Number: ES-GE HEALTHCARE-2024CSU012466

PATIENT
  Age: 60 Year
  Sex: Female
  Weight: 65 kg

DRUGS (1)
  1. CLARISCAN [Suspect]
     Active Substance: GADOTERATE MEGLUMINE
     Indication: Magnetic resonance imaging head
     Dosage: 13 ML, TOTAL
     Route: 065
     Dates: start: 20241025, end: 20241025

REACTIONS (6)
  - Ear discomfort [Recovered/Resolved]
  - Dyspnoea [Recovered/Resolved]
  - Cough [Recovered/Resolved]
  - Pharyngeal swelling [Recovered/Resolved]
  - Ear swelling [Recovered/Resolved]
  - Throat tightness [Recovered/Resolved]

NARRATIVE: CASE EVENT DATE: 20241025
